FAERS Safety Report 9439108 (Version 3)
Quarter: 2013Q4

REPORT INFORMATION
  Report Type: Spontaneous
  Country: FR (occurrence: FR)
  Receive Date: 20130802
  Receipt Date: 20131010
  Transmission Date: 20140711
  Serious: Yes (Hospitalization)
  Sender: FDA-Public Use
  Company Number: FR-ROCHE-1256270

PATIENT
  Age: 92 Year
  Sex: Female

DRUGS (4)
  1. ROCEPHINE [Suspect]
     Indication: BRONCHITIS
     Route: 042
     Dates: start: 20130415, end: 20130417
  2. ACUILIX [Suspect]
     Indication: HYPERTENSION
     Dosage: 20 MG/12.5 MG SCORED COATED TABLET
     Route: 065
     Dates: end: 20130416
  3. TANAKAN [Concomitant]
     Dosage: 160 MG
     Route: 065
  4. KARDEGIC [Concomitant]
     Route: 065

REACTIONS (5)
  - Hyponatraemia [Recovered/Resolved]
  - Renal failure [Recovering/Resolving]
  - Hyperuricaemia [Recovering/Resolving]
  - Blood alkaline phosphatase increased [Recovering/Resolving]
  - Aspartate aminotransferase increased [Recovering/Resolving]
